FAERS Safety Report 19639276 (Version 1)
Quarter: 2021Q3

REPORT INFORMATION
  Report Type: Spontaneous
  Country: US (occurrence: US)
  Receive Date: 20210730
  Receipt Date: 20210730
  Transmission Date: 20211014
  Serious: No
  Sender: FDA-Public Use
  Company Number: US-009507513-2107USA007443

PATIENT
  Sex: Female

DRUGS (4)
  1. MOMETASONE FUROATE. [Suspect]
     Active Substance: MOMETASONE FUROATE
  2. PROVENTIL [Suspect]
     Active Substance: ALBUTEROL
  3. XOPENEX [Suspect]
     Active Substance: LEVALBUTEROL HYDROCHLORIDE
     Indication: ASTHMA
     Dosage: FORMULATION: INHALER; ONE PUFF AS NEEDED
     Dates: start: 2009
  4. MOMETASONE FUROATE. [Suspect]
     Active Substance: MOMETASONE FUROATE

REACTIONS (1)
  - Feeling jittery [Unknown]
